FAERS Safety Report 9998178 (Version 2)
Quarter: 2014Q2

REPORT INFORMATION
  Report Type: Spontaneous
  Country: US (occurrence: US)
  Receive Date: 20140311
  Receipt Date: 20140515
  Transmission Date: 20141212
  Serious: Yes (Hospitalization)
  Sender: FDA-Public Use
  Company Number: US-GILEAD-2014-0096419

PATIENT
  Sex: Female

DRUGS (4)
  1. LETAIRIS [Suspect]
     Indication: PULMONARY HYPERTENSION
     Route: 048
     Dates: start: 20130613
  2. LETAIRIS [Suspect]
     Indication: MEDIASTINAL FIBROSIS
  3. TRACLEER                           /01587701/ [Concomitant]
  4. REVATIO [Concomitant]

REACTIONS (2)
  - Smoke sensitivity [Unknown]
  - Perfume sensitivity [Unknown]
